FAERS Safety Report 4784467-5 (Version None)
Quarter: 2005Q3

REPORT INFORMATION
  Report Type: 
  Country: None (occurrence: None)
  Receive Date: 20050929
  Receipt Date: 20050929
  Transmission Date: 20060218
  Serious: Yes (Death, Hospitalization)
  Sender: FDA-Public Use
  Company Number: None

PATIENT
  Sex: Male
  Weight: 93 kg

DRUGS (4)
  1. DAUNOMYCIN [Suspect]
     Indication: ACUTE MYELOID LEUKAEMIA
     Dosage: SEE IMAGE
     Route: 042
     Dates: start: 20050829
  2. CYTARABINE [Suspect]
     Dosage: SEE IMAGE
     Route: 042
     Dates: start: 20050829, end: 20050904
  3. MYLOTARG [Suspect]
     Dosage: SEE IMAGE
     Route: 042
     Dates: start: 20050829, end: 20050831
  4. GROWTH FACTOR [Suspect]
     Dosage: SEE IMAGE
     Dates: start: 20050829

REACTIONS (28)
  - ACUTE RESPIRATORY DISTRESS SYNDROME [None]
  - ALANINE AMINOTRANSFERASE INCREASED [None]
  - ANOREXIA [None]
  - ASPARTATE AMINOTRANSFERASE INCREASED [None]
  - ASTERIXIS [None]
  - BLOOD BILIRUBIN INCREASED [None]
  - BLOOD CREATININE INCREASED [None]
  - BONE MARROW DISORDER [None]
  - CONFUSIONAL STATE [None]
  - CULTURE URINE POSITIVE [None]
  - FEBRILE NEUTROPENIA [None]
  - GRAM STAIN NEGATIVE [None]
  - HAEMODIALYSIS [None]
  - HAEMOPTYSIS [None]
  - HEPATIC FAILURE [None]
  - HYPERTENSION [None]
  - HYPOTENSION [None]
  - INTERNATIONAL NORMALISED RATIO INCREASED [None]
  - LEUKAEMIA [None]
  - MUCOSAL INFLAMMATION [None]
  - OEDEMA [None]
  - PETECHIAE [None]
  - PNEUMONIA BACTERIAL [None]
  - RENAL FAILURE [None]
  - SEPSIS [None]
  - THERAPEUTIC RESPONSE DECREASED [None]
  - VENOOCCLUSIVE LIVER DISEASE [None]
  - VOLUME BLOOD INCREASED [None]
